FAERS Safety Report 11852499 (Version 2)
Quarter: 2016Q1

REPORT INFORMATION
  Report Type: Spontaneous
  Country: US (occurrence: US)
  Receive Date: 20151218
  Receipt Date: 20160205
  Transmission Date: 20160526
  Serious: No
  Sender: FDA-Public Use
  Company Number: US-BAYER-2015-487441

PATIENT
  Age: 87 Year
  Sex: Female

DRUGS (1)
  1. CLARITIN [Suspect]
     Active Substance: LORATADINE
     Dosage: 1 DF, QD

REACTIONS (6)
  - Headache [None]
  - Therapeutic response unexpected [None]
  - Product packaging quantity issue [None]
  - Cough [None]
  - Product closure removal difficult [None]
  - Product use issue [Unknown]
